FAERS Safety Report 12312930 (Version 1)
Quarter: 2016Q2

REPORT INFORMATION
  Report Type: Spontaneous
  Country: US (occurrence: None)
  Receive Date: 20160427
  Receipt Date: 20160427
  Transmission Date: 20160815
  Serious: Yes (Disabling, Other)
  Sender: FDA-Public Use
  Company Number: None

PATIENT
  Age: 53 Year
  Sex: Male
  Weight: 89.81 kg

DRUGS (3)
  1. GABAPENTIN, 300 MG [Suspect]
     Active Substance: GABAPENTIN
     Indication: BACK PAIN
     Route: 048
  2. TRAZODONE [Concomitant]
     Active Substance: TRAZODONE HYDROCHLORIDE
  3. ELAVIL [Concomitant]
     Active Substance: AMITRIPTYLINE HYDROCHLORIDE

REACTIONS (6)
  - Pain [None]
  - Asthenia [None]
  - Muscular weakness [None]
  - Brain injury [None]
  - Cognitive disorder [None]
  - Skin disorder [None]

NARRATIVE: CASE EVENT DATE: 20160418
